FAERS Safety Report 6340019-7 (Version None)
Quarter: 2009Q3

REPORT INFORMATION
  Report Type: 
  Country: None (occurrence: None)
  Receive Date: 20090903
  Receipt Date: 20090819
  Transmission Date: 20100115
  Serious: Yes (Life-Threatening, Hospitalization)
  Sender: FDA-Public Use
  Company Number: IL-GENENTECH-289272

PATIENT
  Age: 60 Year
  Sex: Female

DRUGS (3)
  1. RITUXIMAB [Suspect]
     Indication: RHEUMATOID ARTHRITIS
     Dosage: 1000 UNK, UNK
     Route: 042
     Dates: end: 20081005
  2. METHOTREXATE [Concomitant]
     Indication: RHEUMATOID ARTHRITIS
     Dosage: 1000 UNK, UNK
  3. STEROID NOS [Concomitant]
     Indication: RHEUMATOID ARTHRITIS
     Dosage: UNK

REACTIONS (3)
  - ACUTE RESPIRATORY DISTRESS SYNDROME [None]
  - RESPIRATORY DISORDER [None]
  - RESPIRATORY DISTRESS [None]
